FAERS Safety Report 8797532 (Version 1)
Quarter: 2012Q4

REPORT INFORMATION
  Report Type: 
  Country: NL (occurrence: NL)
  Receive Date: 20120920
  Receipt Date: 20120920
  Transmission Date: 20130627
  Serious: Yes (Death)
  Sender: FDA-Public Use
  Company Number: PHHY2012NL081434

PATIENT
  Age: 70 Year
  Sex: Male

DRUGS (4)
  1. ZOMETA [Suspect]
     Indication: PROSTATE CANCER METASTATIC
     Dosage: 4mg/100ml once per 28 days
  2. ZOMETA [Suspect]
     Dosage: 4mg/100ml,once per 28 days
     Dates: start: 20120315
  3. ZOMETA [Suspect]
     Dosage: 4mg/100ml,once per 28 days
     Dates: start: 20120730, end: 20120828
  4. ZOMETA [Suspect]
     Dosage: 4mg/100ml,once per 28 days
     Dates: start: 20120828, end: 20120828

REACTIONS (1)
  - Euthanasia [Fatal]
